FAERS Safety Report 12983656 (Version 3)
Quarter: 2017Q1

REPORT INFORMATION
  Report Type: Spontaneous
  Country: DE (occurrence: DE)
  Receive Date: 20161129
  Receipt Date: 20170224
  Transmission Date: 20170428
  Serious: Yes (Life-Threatening, Hospitalization, Other)
  Sender: FDA-Public Use
  Company Number: DE-PFIZER INC-2016554345

PATIENT
  Age: 73 Year
  Sex: Female
  Weight: 68 kg

DRUGS (7)
  1. L THYROXINE [Concomitant]
     Active Substance: LEVOTHYROXINE SODIUM
     Indication: GOITRE
     Dosage: 25 UG, 1X/DAY
     Route: 048
     Dates: start: 2014
  2. VALSARTAN. [Concomitant]
     Active Substance: VALSARTAN
     Indication: HYPERTENSION
     Dosage: 160 MG, 1X/DAY
     Route: 048
     Dates: start: 20161012
  3. VALSARTAN. [Concomitant]
     Active Substance: VALSARTAN
     Dosage: 80 MG, 1X/DAY
     Route: 048
     Dates: start: 20161013
  4. PANTOPRAZOLE [Suspect]
     Active Substance: PANTOPRAZOLE SODIUM
     Indication: GASTRITIS
     Dosage: 20 MG, UNK
     Route: 048
     Dates: start: 2010, end: 2010
  5. PANTOPRAZOLE [Suspect]
     Active Substance: PANTOPRAZOLE SODIUM
     Dosage: 40 MG, UNK
     Route: 048
     Dates: start: 2010, end: 20161025
  6. CINNARIZINE W/DIMENHYDRINATE [Concomitant]
     Indication: DIZZINESS
     Dosage: 1 DF, 1X/DAY
     Route: 048
     Dates: start: 201605
  7. METOPROLOL. [Concomitant]
     Active Substance: METOPROLOL
     Indication: HYPERTENSION
     Dosage: 95 MG, 1X/DAY
     Route: 048
     Dates: start: 2012

REACTIONS (5)
  - Sepsis [Recovering/Resolving]
  - Urinary tract infection [Recovering/Resolving]
  - Liver abscess [Recovering/Resolving]
  - Immunosuppression [Recovering/Resolving]
  - Neutrophil function disorder [Recovering/Resolving]

NARRATIVE: CASE EVENT DATE: 2016
